FAERS Safety Report 8494780-6 (Version None)
Quarter: 2012Q3

REPORT INFORMATION
  Report Type: 
  Country: None (occurrence: None)
  Receive Date: 20120709
  Receipt Date: 20120623
  Transmission Date: 20120928
  Serious: No
  Sender: FDA-Public Use
  Company Number: CA-JNJFOC-20120301775

PATIENT
  Sex: Female
  Weight: 87 kg

DRUGS (1)
  1. REMICADE [Suspect]
     Indication: CROHN'S DISEASE
     Route: 042
     Dates: start: 20101231, end: 20120623

REACTIONS (5)
  - COUGH [None]
  - MATERNAL EXPOSURE DURING PREGNANCY [None]
  - EAR PAIN [None]
  - BRONCHITIS [None]
  - LARYNGITIS [None]
